FAERS Safety Report 8382652 (Version 6)
Quarter: 2012Q4

REPORT INFORMATION
  Report Type: 
  Country: US (occurrence: US)
  Receive Date: 20120201
  Receipt Date: 20121024
  Transmission Date: 20130627
  Serious: Yes (Hospitalization, Other)
  Sender: FDA-Public Use
  Company Number: US-ROCHE-1034661

PATIENT
  Age: 25 Year
  Sex: Male

DRUGS (1)
  1. ACCUTANE [Suspect]
     Indication: ACNE
     Route: 065
     Dates: start: 19880213

REACTIONS (6)
  - Depression [Unknown]
  - Inflammatory bowel disease [Unknown]
  - Anxiety [Unknown]
  - Suicide attempt [Unknown]
  - Cheilitis [Unknown]
  - Erythema [Unknown]
